FAERS Safety Report 5189059-4 (Version None)
Quarter: 2006Q4

REPORT INFORMATION
  Report Type: 
  Country: None (occurrence: None)
  Receive Date: 20061218
  Receipt Date: 20061115
  Transmission Date: 20070319
  Serious: Yes (Other)
  Sender: FDA-Public Use
  Company Number: US-2006-039106

PATIENT
  Sex: Female

DRUGS (1)
  1. MIRENA [Suspect]
     Dosage: 20 UG/DAY, CONT, INTRA-UTERINE
     Route: 015
     Dates: start: 20061101, end: 20061101

REACTIONS (4)
  - COMPLICATION OF DEVICE INSERTION [None]
  - HYPOTENSION [None]
  - SYNCOPE [None]
  - UTERINE HAEMORRHAGE [None]
